FAERS Safety Report 5132790-7 (Version None)
Quarter: 2006Q4

REPORT INFORMATION
  Report Type: 
  Country: None (occurrence: None)
  Receive Date: 20061023
  Receipt Date: 20060619
  Transmission Date: 20070319
  Serious: Yes (Hospitalization)
  Sender: FDA-Public Use
  Company Number: FR-MERCK-0606FRA00043

PATIENT
  Age: 80 Year
  Sex: Female
  Weight: 63 kg

DRUGS (7)
  1. ZOCOR [Suspect]
     Indication: CARDIOVASCULAR EVENT PROPHYLAXIS
     Route: 048
     Dates: start: 20040601, end: 20060522
  2. FLUINDIONE [Suspect]
     Route: 048
     Dates: end: 20060522
  3. ATENOLOL [Suspect]
     Indication: HYPERTENSION
     Route: 048
     Dates: end: 20060522
  4. CANDESARTAN CILEXETIL [Suspect]
     Indication: HYPERTENSION
     Route: 048
     Dates: end: 20060522
  5. OMEPRAZOLE [Suspect]
     Route: 048
     Dates: end: 20060522
  6. AMIODARONE HYDROCHLORIDE [Suspect]
     Indication: ATRIAL FIBRILLATION
     Route: 048
     Dates: start: 20060413, end: 20060522
  7. AMIODARONE HYDROCHLORIDE [Suspect]
     Indication: ATRIAL FLUTTER
     Route: 048
     Dates: start: 20060413, end: 20060522

REACTIONS (4)
  - COUGH [None]
  - INTERSTITIAL LUNG DISEASE [None]
  - MYALGIA [None]
  - MYOSITIS [None]
